FAERS Safety Report 5930647-2 (Version None)
Quarter: 2008Q4

REPORT INFORMATION
  Report Type: 
  Country: None (occurrence: None)
  Receive Date: 20081022
  Receipt Date: 20081010
  Transmission Date: 20090506
  Serious: Yes (Hospitalization)
  Sender: FDA-Public Use
  Company Number: US-JNJFOC-20081002581

PATIENT
  Age: 84 Year
  Sex: Male
  Weight: 73 kg

DRUGS (3)
  1. DECITABINE (DECITABINE) LYOPHILIZED  POWDER [Suspect]
     Indication: ACUTE MYELOID LEUKAEMIA
     Dosage: 20 MG/M2, 1 IN 1 DAY, INTRAVENOUS; 20 MG/M2, 1 IN 1 DAY, INTRAVENOUS
     Route: 042
     Dates: start: 20080822, end: 20080831
  2. DECITABINE (DECITABINE) LYOPHILIZED  POWDER [Suspect]
     Indication: ACUTE MYELOID LEUKAEMIA
     Dosage: 20 MG/M2, 1 IN 1 DAY, INTRAVENOUS; 20 MG/M2, 1 IN 1 DAY, INTRAVENOUS
     Route: 042
     Dates: start: 20080919, end: 20080928
  3. BORTEZOMIB (ANTINEOPLASTIC AGENTS) UNSPECIFIED [Suspect]
     Indication: ACUTE MYELOID LEUKAEMIA
     Dosage: 1 MG/M2, INTRAVENOUS
     Route: 042
     Dates: start: 20080826, end: 20081003

REACTIONS (5)
  - FEBRILE NEUTROPENIA [None]
  - HYPOXIA [None]
  - PLEURAL EFFUSION [None]
  - PULMONARY EMBOLISM [None]
  - VENTRICULAR DYSFUNCTION [None]
